FAERS Safety Report 9837204 (Version 1)
Quarter: 2014Q1

REPORT INFORMATION
  Report Type: Spontaneous
  Country: US (occurrence: None)
  Receive Date: 20140117
  Receipt Date: 20140117
  Transmission Date: 20141002
  Serious: Yes (Life-Threatening, Hospitalization)
  Sender: FDA-Public Use
  Company Number: None

PATIENT
  Age: 44 Year
  Sex: Female
  Weight: 140.62 kg

DRUGS (1)
  1. ZYPREXA 10MG [Suspect]
     Dosage: ONE PILL TWICE A DAY   TWICE DAILY TAKEN BY MOUTH
     Route: 048

REACTIONS (3)
  - Swelling [None]
  - Gait disturbance [None]
  - Dyspnoea [None]
